FAERS Safety Report 6790328-2 (Version None)
Quarter: 2010Q2

REPORT INFORMATION
  Report Type: 
  Country: None (occurrence: None)
  Receive Date: 20100624
  Receipt Date: 20080122
  Transmission Date: 20101027
  Serious: Yes (Hospitalization)
  Sender: FDA-Public Use
  Company Number: GB-SOLVAY-00206001120

PATIENT
  Age: 30168 Day
  Sex: Male
  Weight: 67 kg

DRUGS (15)
  1. PERINDOPRIL/INDAPAMIDE [Suspect]
     Indication: PROPHYLAXIS
     Dosage: DAILY DOSE: 2 DOSAGE FORM
     Route: 048
     Dates: start: 20020320, end: 20020329
  2. PERINDOPRIL/INDAPAMIDE [Suspect]
     Dosage: DAILY DOSE: 2 DOSAGE FORM
     Route: 048
     Dates: start: 20020402, end: 20020403
  3. PERINDOPRIL/INDAPAMIDE [Suspect]
     Dosage: DAILY DOSE: 2 DOSAGE FORM
     Route: 048
     Dates: start: 20020404, end: 20020425
  4. PERINDOPRIL/INDAPAMIDE [Suspect]
     Dosage: DAILY DOSE: 2 DOSAGE FORM
     Route: 048
     Dates: start: 20020918, end: 20021213
  5. DIAMICRON MR [Concomitant]
     Indication: DRUG USE FOR UNKNOWN INDICATION
     Dosage: DAILY DOSE: 30 MILLIGRAM(S)
     Route: 048
     Dates: start: 20020320
  6. COVERSYL [Suspect]
     Indication: HYPERTENSION
     Dosage: DAILY DOSE: 8 MILLIGRAM(S)
     Route: 048
     Dates: start: 20021213, end: 20060322
  7. COVERSYL [Suspect]
     Dosage: DAILY DOSE: 4 MILLIGRAM(S)
     Route: 048
     Dates: start: 20060323
  8. MEBEVERINE [Concomitant]
     Indication: DRUG USE FOR UNKNOWN INDICATION
     Dosage: DAILY DOSE:  UNKNOWN
     Route: 065
     Dates: start: 20020101
  9. TIOTROPIUM [Concomitant]
     Indication: DRUG USE FOR UNKNOWN INDICATION
     Dosage: DAILY DOSE:  UNKNOWN
     Route: 065
     Dates: start: 20040101
  10. SERETIDE [Concomitant]
     Indication: DRUG USE FOR UNKNOWN INDICATION
     Dosage: DAILY DOSE:  UNKNOWN
     Route: 065
     Dates: start: 20040101
  11. SALBUTAMOL [Concomitant]
     Indication: DRUG USE FOR UNKNOWN INDICATION
     Dosage: DAILY DOSE:  UNKNOWN
     Route: 065
     Dates: start: 20020101
  12. OMEPRAZOLE [Concomitant]
     Indication: DRUG USE FOR UNKNOWN INDICATION
     Dosage: DAILY DOSE:  UNKNOWN
     Route: 065
     Dates: start: 20020101
  13. FUROSIDE [Concomitant]
     Indication: DRUG USE FOR UNKNOWN INDICATION
     Dosage: DAILY DOSE:  UNKNOWN
     Route: 065
  14. AMILORIDE HYDROCHLORIDE [Suspect]
     Indication: DRUG USE FOR UNKNOWN INDICATION
     Dosage: DAILY DOSE: 5 MILLIGRAM(S)
     Route: 048
     Dates: end: 20060322
  15. METFORMIN HCL [Suspect]
     Indication: DRUG USE FOR UNKNOWN INDICATION
     Dosage: DAILY DOSE:  UNKNOWN
     Route: 048
     Dates: end: 20060322

REACTIONS (3)
  - ACIDOSIS [None]
  - ELECTROCARDIOGRAM CHANGE [None]
  - HYPERKALAEMIA [None]
